FAERS Safety Report 10207948 (Version 1)
Quarter: 2014Q2

REPORT INFORMATION
  Report Type: Spontaneous
  Country: TR (occurrence: TR)
  Receive Date: 20140530
  Receipt Date: 20140530
  Transmission Date: 20141212
  Serious: Yes (Hospitalization, Other)
  Sender: FDA-Public Use
  Company Number: TR-WATSON-2014-11187

PATIENT
  Age: 24 Year
  Sex: Male

DRUGS (2)
  1. METFORMIN (UNKNOWN) [Suspect]
     Indication: SUICIDE ATTEMPT
     Dosage: 16 G, SINGLE
     Route: 065
  2. TELMISARTAN/HYDROCHLOROTHIAZIDE [Suspect]
     Indication: SUICIDE ATTEMPT
     Dosage: 2.6 G/1.6 G
     Route: 065

REACTIONS (6)
  - Alanine aminotransferase increased [Recovered/Resolved]
  - Suicide attempt [Recovered/Resolved with Sequelae]
  - Overdose [Recovered/Resolved]
  - Blood pH decreased [None]
  - PCO2 decreased [None]
  - Blood glucose decreased [None]
